FAERS Safety Report 4802784-7 (Version None)
Quarter: 2005Q4

REPORT INFORMATION
  Report Type: 
  Country: None (occurrence: None)
  Receive Date: 20051017
  Receipt Date: 20051017
  Transmission Date: 20060501
  Serious: No
  Sender: FDA-Public Use
  Company Number: None

PATIENT
  Age: 60 Year
  Sex: Male
  Weight: 65 kg

DRUGS (1)
  1. ZYLOPRIM [Suspect]
     Indication: HYPERURICAEMIA

REACTIONS (9)
  - BLOOD TEST ABNORMAL [None]
  - DRUG HYPERSENSITIVITY [None]
  - LIVER FUNCTION TEST ABNORMAL [None]
  - OEDEMA PERIPHERAL [None]
  - PYREXIA [None]
  - RASH [None]
  - SKIN DISCOLOURATION [None]
  - SKIN EXFOLIATION [None]
  - STEVENS-JOHNSON SYNDROME [None]
